FAERS Safety Report 5718926-5 (Version None)
Quarter: 2008Q2

REPORT INFORMATION
  Report Type: 
  Country: None (occurrence: None)
  Receive Date: 20080423
  Receipt Date: 20080311
  Transmission Date: 20081010
  Serious: Yes (Other)
  Sender: FDA-Public Use
  Company Number: 2008AL001949

PATIENT
  Age: 69 Year
  Sex: Male

DRUGS (3)
  1. FINASTERIDE [Suspect]
     Indication: BENIGN PROSTATIC HYPERPLASIA
     Dosage: 5 MG;QD;PO
     Route: 048
     Dates: start: 20071124, end: 20071201
  2. ALBUTEROL [Concomitant]
  3. BECLOMETHASONE DIPROPIONATE [Concomitant]

REACTIONS (4)
  - MASS [None]
  - PAIN [None]
  - PHARMACEUTICAL PRODUCT COMPLAINT [None]
  - TESTICULAR SWELLING [None]
